FAERS Safety Report 7291462-3 (Version None)
Quarter: 2011Q1

REPORT INFORMATION
  Report Type: 
  Country: None (occurrence: None)
  Receive Date: 20110201
  Receipt Date: 20080910
  Transmission Date: 20110831
  Serious: Yes (Other)
  Sender: FDA-Public Use
  Company Number: 2008EU001918

PATIENT
  Age: 69 Year
  Sex: Female

DRUGS (10)
  1. CELLCEPT [Concomitant]
  2. CANCIDAS [Concomitant]
  3. VANCOMYCIN [Concomitant]
  4. PANTOPRAZOLE SODIUM [Concomitant]
  5. TIENAM (IMIPENEM, CILASTATIN SODIUM) [Suspect]
     Indication: RENAL FAILURE
     Dosage: 1.5 G, UID/QD
     Dates: start: 20080803, end: 20080813
  6. PROGRAF [Suspect]
     Indication: RENAL TRANSPLANT
     Dosage: 0.4 MG, UID/QD 0.3 MG, UID/QD 0.1 MG, UID/QD
     Dates: end: 20080811
  7. PROGRAF [Suspect]
     Indication: RENAL TRANSPLANT
     Dosage: 0.4 MG, UID/QD 0.3 MG, UID/QD 0.1 MG, UID/QD
     Dates: start: 20080812, end: 20080813
  8. PROGRAF [Suspect]
     Indication: RENAL TRANSPLANT
     Dosage: 0.4 MG, UID/QD 0.3 MG, UID/QD 0.1 MG, UID/QD
     Dates: start: 20080815
  9. FLAGYL [Concomitant]
  10. METHYLPREDNISOLONE [Concomitant]

REACTIONS (5)
  - ACUTE RESPIRATORY DISTRESS SYNDROME [None]
  - CONVULSION [None]
  - IMMUNOSUPPRESSANT DRUG LEVEL INCREASED [None]
  - CEREBROVASCULAR ACCIDENT [None]
  - LABILE BLOOD PRESSURE [None]
